FAERS Safety Report 6303043-6 (Version None)
Quarter: 2009Q3

REPORT INFORMATION
  Report Type: 
  Country: None (occurrence: None)
  Receive Date: 20090810
  Receipt Date: 20090805
  Transmission Date: 20100115
  Serious: Yes (Death)
  Sender: FDA-Public Use
  Company Number: US-CELGENEUS-163-20785-09071094

PATIENT
  Sex: Female

DRUGS (1)
  1. THALOMID [Suspect]
     Indication: MULTIPLE MYELOMA
     Route: 048
     Dates: start: 20080501

REACTIONS (6)
  - BLISTER [None]
  - DEHYDRATION [None]
  - MALNUTRITION [None]
  - PRURITUS [None]
  - RASH ERYTHEMATOUS [None]
  - SEPSIS [None]
